FAERS Safety Report 22361640 (Version 1)
Quarter: 2023Q2

REPORT INFORMATION
  Report Type: Spontaneous
  Country: US (occurrence: None)
  Receive Date: 20230524
  Receipt Date: 20230524
  Transmission Date: 20230721
  Serious: No
  Sender: FDA-Public Use
  Company Number: None

PATIENT

DRUGS (2)
  1. VASOPRESSIN [Suspect]
     Active Substance: VASOPRESSIN
     Dosage: OTHER STRENGTH : 20 UNITS/ML;?
  2. RETACRIT [Suspect]
     Active Substance: EPOETIN ALFA-EPBX
     Dosage: OTHER STRENGTH : 4000 UNIT/ML;?

REACTIONS (4)
  - Product packaging confusion [None]
  - Wrong product stored [None]
  - Product label confusion [None]
  - Intercepted product administration error [None]
